FAERS Safety Report 8069576-X (Version None)
Quarter: 2011Q4

REPORT INFORMATION
  Report Type: 
  Country: None (occurrence: None)
  Receive Date: 20111221
  Receipt Date: 20110712
  Transmission Date: 20120403
  Serious: Yes (Other)
  Sender: FDA-Public Use
  Company Number: PHEH2009US05190

PATIENT
  Age: 90 Year
  Sex: Female
  Weight: 80 kg

DRUGS (16)
  1. COREG [Concomitant]
  2. EXJADE [Suspect]
     Indication: NEOPLASM
     Dosage: 1250 MG, DAILY, ORAL, 2000 MG, DAILY, ORAL
     Route: 048
     Dates: start: 20110706
  3. EXJADE [Suspect]
     Indication: IRON OVERLOAD
     Dosage: 1250 MG, DAILY, ORAL, 2000 MG, DAILY, ORAL
     Route: 048
     Dates: start: 20110706
  4. EXJADE [Suspect]
     Indication: NEOPLASM
     Dosage: 1250 MG, DAILY, ORAL, 2000 MG, DAILY, ORAL
     Route: 048
     Dates: start: 20090518, end: 20110705
  5. EXJADE [Suspect]
     Indication: IRON OVERLOAD
     Dosage: 1250 MG, DAILY, ORAL, 2000 MG, DAILY, ORAL
     Route: 048
     Dates: start: 20090518, end: 20110705
  6. SINEMET 10/100 (CARBIDOPA, LEVODOPA) [Concomitant]
  7. LANOXIN [Concomitant]
  8. LORCET-HD [Concomitant]
  9. POTASSIUM CHLORIDE [Concomitant]
  10. AVAPRO [Concomitant]
  11. NEURONTIN [Concomitant]
  12. HYDROXYUREA [Concomitant]
  13. LASIX [Concomitant]
  14. CLARITIN [Concomitant]
  15. PRILOSEC [Concomitant]
  16. ASPIRIN [Concomitant]

REACTIONS (4)
  - DIARRHOEA [None]
  - BLOOD SODIUM DECREASED [None]
  - SERUM FERRITIN INCREASED [None]
  - HAEMOGLOBIN DECREASED [None]
